FAERS Safety Report 15463140 (Version 1)
Quarter: 2018Q4

REPORT INFORMATION
  Report Type: Spontaneous
  Country: US (occurrence: US)
  Receive Date: 20181001
  Receipt Date: 20181001
  Transmission Date: 20190204
  Serious: Yes (Other)
  Sender: FDA-Public Use
  Company Number: None

PATIENT
  Age: 37 Year
  Sex: Female
  Weight: 73.94 kg

DRUGS (1)
  1. LILETTA [Suspect]
     Active Substance: LEVONORGESTREL
     Dates: start: 20180412, end: 20180917

REACTIONS (18)
  - Fatigue [None]
  - Weight increased [None]
  - Vomiting [None]
  - Coital bleeding [None]
  - Anxiety [None]
  - Haemorrhage [None]
  - Alopecia [None]
  - Rash generalised [None]
  - Abdominal distension [None]
  - Headache [None]
  - Feeling hot [None]
  - Vitreous floaters [None]
  - Complication associated with device [None]
  - Nausea [None]
  - Tremor [None]
  - Rash pruritic [None]
  - Autoimmune disorder [None]
  - Head discomfort [None]

NARRATIVE: CASE EVENT DATE: 20180820
